FAERS Safety Report 14840533 (Version 2)
Quarter: 2019Q2

REPORT INFORMATION
  Report Type: Spontaneous
  Country: CH (occurrence: CH)
  Receive Date: 20180503
  Receipt Date: 20190606
  Transmission Date: 20190711
  Serious: Yes (Disabling, Other)
  Sender: FDA-Public Use
  Company Number: CH-AMGEN-CHESP2018031471

PATIENT
  Age: 54 Year
  Sex: Female
  Weight: 75 kg

DRUGS (2)
  1. PROLIA [Suspect]
     Active Substance: DENOSUMAB
     Indication: OSTEOPOROSIS
     Dosage: UNK
     Route: 058
     Dates: start: 201202, end: 201605
  2. CALCIMAGON D3 [Concomitant]
     Active Substance: CALCIUM\CHOLECALCIFEROL
     Indication: OSTEOPOROSIS
     Dosage: FORTE, QD
     Dates: start: 201202

REACTIONS (3)
  - Lumbar vertebral fracture [Not Recovered/Not Resolved]
  - Thoracic vertebral fracture [Not Recovered/Not Resolved]
  - Hepatic cancer [Unknown]

NARRATIVE: CASE EVENT DATE: 2014
